FAERS Safety Report 7931524-8 (Version None)
Quarter: 2011Q4

REPORT INFORMATION
  Report Type: 
  Country: None (occurrence: None)
  Receive Date: 20111121
  Receipt Date: 20111121
  Transmission Date: 20120403
  Serious: Yes (Life-Threatening)
  Sender: FDA-Public Use
  Company Number: None

PATIENT
  Age: 51 Year
  Sex: Female
  Weight: 72 kg

DRUGS (1)
  1. LAMICTAL [Suspect]
     Indication: MOOD ALTERED
     Dates: start: 20070212, end: 20070425

REACTIONS (3)
  - ORAL DISCOMFORT [None]
  - VULVOVAGINAL BURNING SENSATION [None]
  - MENOPAUSE [None]
